FAERS Safety Report 8065125-0 (Version None)
Quarter: 2012Q1

REPORT INFORMATION
  Report Type: 
  Country: None (occurrence: None)
  Receive Date: 20120117
  Receipt Date: 20120105
  Transmission Date: 20120608
  Serious: Yes (Hospitalization)
  Sender: FDA-Public Use
  Company Number: 2011AL000080

PATIENT
  Age: 75 Year
  Sex: Female
  Weight: 47.1741 kg

DRUGS (11)
  1. FLUCONAZOLE [Concomitant]
  2. OXYCODONE HCL [Concomitant]
  3. WARFARIN SODIUM [Concomitant]
  4. ESOMEPRAZOLE MAGNESIUM [Concomitant]
  5. DEXAMETHASONE [Concomitant]
  6. HYDROCORTISONE [Concomitant]
  7. CALCIUM [Concomitant]
  8. FOLIC ACID [Concomitant]
  9. FISH OIL [Concomitant]
  10. VICODIN [Concomitant]
  11. PRALATREXATE (PRALATREXATE) [Suspect]
     Indication: OVARIAN CANCER
     Dosage: 20 MG/M**2; ;IV
     Route: 042
     Dates: start: 20110419, end: 20110915

REACTIONS (25)
  - MALNUTRITION [None]
  - FATIGUE [None]
  - HYPOPHAGIA [None]
  - WHITE BLOOD CELL COUNT DECREASED [None]
  - BLOOD GLUCOSE INCREASED [None]
  - PROTEIN TOTAL INCREASED [None]
  - ASCITES [None]
  - PLATELET COUNT INCREASED [None]
  - BLOOD SODIUM DECREASED [None]
  - BLOOD CREATININE DECREASED [None]
  - OESOPHAGEAL CANDIDIASIS [None]
  - DIARRHOEA [None]
  - WEIGHT DECREASED [None]
  - HAEMOGLOBIN DECREASED [None]
  - BLOOD POTASSIUM DECREASED [None]
  - RED BLOOD CELL COUNT DECREASED [None]
  - MUCOSAL INFLAMMATION [None]
  - NEUTROPHIL PERCENTAGE DECREASED [None]
  - BOWEL MOVEMENT IRREGULARITY [None]
  - HAEMATOCRIT DECREASED [None]
  - BLOOD LACTATE DEHYDROGENASE INCREASED [None]
  - ORAL CANDIDIASIS [None]
  - DEHYDRATION [None]
  - MOBILITY DECREASED [None]
  - BLOOD CHLORIDE DECREASED [None]
